FAERS Safety Report 6514101 (Version 1)
Quarter: 2020Q3

REPORT INFORMATION
  Report Type: Spontaneous
  Country: GB (occurrence: GB)
  Receive Date: 20071224
  Receipt Date: 20071224
  Transmission Date: 20201105
  Serious: Yes (Death, Hospitalization)
  Sender: FDA-Public Use
  Company Number: GB-ROCHE-537322

PATIENT
  Sex: Male

DRUGS (13)
  1. CLARITHROMYCIN. [Concomitant]
     Active Substance: CLARITHROMYCIN
     Route: 065
     Dates: start: 20070814, end: 20070817
  2. ONDANSETRON [Concomitant]
     Active Substance: ONDANSETRON
     Route: 065
  3. PIPERACILLIN SODIUM\TAZOBACTAM SODIUM [Concomitant]
     Active Substance: PIPERACILLIN SODIUM\TAZOBACTAM SODIUM
     Indication: SEPSIS
     Route: 065
     Dates: start: 20070814, end: 20070818
  4. CALCITONIN SALMON. [Suspect]
     Active Substance: CALCITONIN SALMON
     Indication: HYPERCALCAEMIA OF MALIGNANCY
     Route: 058
     Dates: start: 20070818
  5. CALCITONIN SALMON. [Suspect]
     Active Substance: CALCITONIN SALMON
     Route: 065
     Dates: start: 20070709
  6. NYSTATIN. [Concomitant]
     Active Substance: NYSTATIN
     Route: 065
  7. ZOMETA [Suspect]
     Active Substance: ZOLEDRONIC ACID
     Indication: HYPERCALCAEMIA OF MALIGNANCY
     Route: 042
     Dates: start: 20050302, end: 20070808
  8. IBANDRONIC ACID. [Suspect]
     Active Substance: IBANDRONIC ACID
     Indication: HYPERCALCAEMIA OF MALIGNANCY
     Route: 048
     Dates: start: 20070720, end: 20070818
  9. OXYCONTIN [Concomitant]
     Active Substance: OXYCODONE HYDROCHLORIDE
     Route: 065
  10. PANTOPRAZOLE SODIUM. [Concomitant]
     Active Substance: PANTOPRAZOLE SODIUM
     Route: 065
     Dates: start: 20070817
  11. PAMIDRONIC ACID [Suspect]
     Active Substance: PAMIDRONIC ACID
     Indication: HYPERCALCAEMIA
     Dosage: DRUG REPORTED AS DISODIUM PAMIDRONATE
     Route: 042
     Dates: start: 20070630
  12. DEXAMETHASONE. [Concomitant]
     Active Substance: DEXAMETHASONE
     Route: 065
  13. GABAPENTIN. [Concomitant]
     Active Substance: GABAPENTIN
     Route: 065

REACTIONS (6)
  - Metastatic renal cell carcinoma [Fatal]
  - Drug specific antibody present [Unknown]
  - Listeria sepsis [Unknown]
  - Metastases to central nervous system [Fatal]
  - Hypercalcaemia [Unknown]
  - Metastases to lung [Unknown]

NARRATIVE: CASE EVENT DATE: 20070705
